FAERS Safety Report 8798084 (Version 1)
Quarter: 2012Q4

REPORT INFORMATION
  Report Type: 
  Country: IT (occurrence: IT)
  Receive Date: 20120920
  Receipt Date: 20120920
  Transmission Date: 20130627
  Serious: Yes (Other)
  Sender: FDA-Public Use
  Company Number: IT-JNJFOC-20120905876

PATIENT
  Age: 61 Year
  Sex: Male

DRUGS (4)
  1. TOPIRAMATE [Suspect]
     Indication: CLUSTER HEADACHE
     Route: 048
  2. VERAPAMIL [Suspect]
     Indication: CLUSTER HEADACHE
     Route: 065
  3. METHYSERGIDE [Suspect]
     Indication: CLUSTER HEADACHE
     Route: 065
  4. VALPROATE SODIUM [Suspect]
     Indication: CLUSTER HEADACHE
     Route: 065

REACTIONS (3)
  - Blood prolactin increased [Unknown]
  - Adenoma benign [Unknown]
  - Drug ineffective [Unknown]
